FAERS Safety Report 5846096-1 (Version None)
Quarter: 2008Q3

REPORT INFORMATION
  Report Type: 
  Country: None (occurrence: None)
  Receive Date: 20080813
  Receipt Date: 20080730
  Transmission Date: 20090109
  Serious: No
  Sender: FDA-Public Use
  Company Number: US023866

PATIENT
  Age: 42 Year
  Sex: Female
  Weight: 52.1637 kg

DRUGS (10)
  1. FENTORA [Suspect]
     Indication: BACK PAIN
     Dosage: 200 UG QD BUCCAL
     Route: 002
     Dates: start: 20080201, end: 20080301
  2. FENTORA [Suspect]
     Indication: BACK PAIN
     Dosage: 400 UG QD BUCCAL
     Route: 002
     Dates: start: 20080301, end: 20080311
  3. FENTORA [Suspect]
     Indication: BACK PAIN
     Dosage: 400 UG SPLIT TABLET IN HALF BID BUCCAL
     Route: 002
     Dates: start: 20080312, end: 20080408
  4. FENTORA [Suspect]
     Indication: BACK PAIN
     Dosage: 400 UG QD BUCCAL
     Route: 002
     Dates: start: 20080409
  5. DURAGESIC-100 [Concomitant]
  6. PERCOCET [Concomitant]
  7. AMRIX [Concomitant]
  8. RITALIN [Concomitant]
  9. AMBIEN [Concomitant]
  10. CYMBALTA [Concomitant]

REACTIONS (5)
  - DRUG EFFECT DECREASED [None]
  - INTERVERTEBRAL DISC PROTRUSION [None]
  - MEDICATION ERROR [None]
  - PAIN [None]
  - WRONG TECHNIQUE IN DRUG USAGE PROCESS [None]
